FAERS Safety Report 15188555 (Version 5)
Quarter: 2018Q4

REPORT INFORMATION
  Report Type: Spontaneous
  Country: CA (occurrence: CA)
  Receive Date: 20180724
  Receipt Date: 20181114
  Transmission Date: 20190204
  Serious: Yes (Other)
  Sender: FDA-Public Use
  Company Number: CA-CELLTRION INC.-2017CA011706

PATIENT

DRUGS (20)
  1. INFLECTRA [Suspect]
     Active Substance: INFLIXIMAB-DYYB
     Dosage: 2 INFUSIONS 1 MONTH APART AND MAINTENANCE DOSE EVERY 6 WEEKS THEREAFTER
     Route: 042
     Dates: start: 20180627
  2. INFLECTRA [Suspect]
     Active Substance: INFLIXIMAB-DYYB
     Dosage: UNK
     Route: 065
  3. FOLIC ACID. [Concomitant]
     Active Substance: FOLIC ACID
     Dosage: 5 MG, DAILY
  4. ALLOPURINOL. [Concomitant]
     Active Substance: ALLOPURINOL
     Dosage: 300 MG, DAILY
  5. INFLECTRA [Suspect]
     Active Substance: INFLIXIMAB-DYYB
     Dosage: 2 INFUSIONS 1 MONTH APART AND MAINTENANCE DOSE EVERY 6 WEEK THEREAFTER
     Route: 042
     Dates: start: 20180214
  6. INFLECTRA [Suspect]
     Active Substance: INFLIXIMAB-DYYB
     Dosage: 2 INFUSIONS 1 MONTH APART AND MAINTENANCE DOSE EVERY 6 WEEKS THEREAFTER
     Route: 042
     Dates: start: 20180627
  7. TERAZOSIN [Concomitant]
     Active Substance: TERAZOSIN\TERAZOSIN HYDROCHLORIDE
     Dosage: 10 MG, DAILY
  8. INFLECTRA [Suspect]
     Active Substance: INFLIXIMAB-DYYB
     Dosage: UNK
     Route: 042
     Dates: start: 20180327
  9. INFLECTRA [Suspect]
     Active Substance: INFLIXIMAB-DYYB
     Dosage: 700 MG EVERY 5 WEEKS
     Route: 042
  10. ASA [Concomitant]
     Active Substance: ASPIRIN
     Dosage: 81 MG, DAILY
  11. INFLECTRA [Suspect]
     Active Substance: INFLIXIMAB-DYYB
     Indication: PSORIATIC ARTHROPATHY
     Dosage: 600 MG, CYCLIC, THEN EVERY 6 WEEKS
     Route: 042
     Dates: start: 20160614, end: 20170906
  12. INFLECTRA [Suspect]
     Active Substance: INFLIXIMAB-DYYB
     Indication: RHEUMATOID ARTHRITIS
     Dosage: 2 INFUSIONS 1 MONTH APART AND MAINTENANCE DOSE EVERY 6 WEEK THEREAFTER
     Route: 042
     Dates: start: 20180117
  13. LIPITOR [Concomitant]
     Active Substance: ATORVASTATIN CALCIUM
     Dosage: 20 UNK, DAILY
     Route: 048
  14. INFLECTRA [Suspect]
     Active Substance: INFLIXIMAB-DYYB
     Dosage: 700 MG, CYCLIC, EVERY 5 WEEKS)
     Route: 042
  15. INFLECTRA [Suspect]
     Active Substance: INFLIXIMAB-DYYB
     Dosage: 2 INFUSIONS 1 MONTH APART AND MAINTENANCE DOSE EVERY 6 WEEKS THEREAFTER
     Route: 042
     Dates: start: 20180802
  16. LOSARTAN. [Concomitant]
     Active Substance: LOSARTAN
     Dosage: 50 MG, DAILY
  17. LORAZEPAM. [Concomitant]
     Active Substance: LORAZEPAM
     Dosage: AS NEEDED
  18. INFLECTRA [Suspect]
     Active Substance: INFLIXIMAB-DYYB
     Dosage: 2 INFUSIONS 1 MONTH APART AND MAINTENANCE DOSE EVERY 6 WEEK THEREAFTER
     Route: 042
     Dates: start: 20180214
  19. INFLECTRA [Suspect]
     Active Substance: INFLIXIMAB-DYYB
     Dosage: 2 INFUSIONS 1 MONTH APART AND MAINTENANCE DOSE EVERY 6 WEEKS THEREAFTER
     Route: 042
     Dates: start: 20180802
  20. METHOTREXATE. [Concomitant]
     Active Substance: METHOTREXATE
     Dosage: UNK
     Route: 048

REACTIONS (12)
  - Kidney infection [Not Recovered/Not Resolved]
  - Blood pressure fluctuation [Unknown]
  - Cataract [Unknown]
  - Pain [Unknown]
  - Skin cancer [Unknown]
  - Heart rate irregular [Unknown]
  - Melanocytic naevus [Unknown]
  - Body temperature fluctuation [Unknown]
  - Weight decreased [Unknown]
  - Product use issue [Unknown]
  - Skin wound [Unknown]
  - Wound secretion [Unknown]

NARRATIVE: CASE EVENT DATE: 2018
